FAERS Safety Report 9011873 (Version 3)
Quarter: 2013Q2

REPORT INFORMATION
  Report Type: Spontaneous
  Country: FR (occurrence: FR)
  Receive Date: 20130114
  Receipt Date: 20130425
  Transmission Date: 20140414
  Serious: Yes (Hospitalization, Other)
  Sender: FDA-Public Use
  Company Number: FR-AMGEN-FRASP2013001375

PATIENT
  Age: 45 Year
  Sex: Male

DRUGS (1)
  1. ENBREL [Suspect]
     Indication: ANKYLOSING SPONDYLITIS
     Dosage: 50 MG, ONCE EVERY 10 DAYS
     Route: 058
     Dates: start: 2007

REACTIONS (13)
  - Hypercapnic coma [Recovered/Resolved]
  - Quadriplegia [Recovered/Resolved]
  - Bladder dysfunction [Not Recovered/Not Resolved]
  - Encephalitis [Recovered/Resolved with Sequelae]
  - Meningitis aseptic [Recovered/Resolved with Sequelae]
  - Depression [Unknown]
  - Asthenia [Unknown]
  - Decreased appetite [Unknown]
  - Paraparesis [Unknown]
  - Anorectal disorder [Unknown]
  - Urinary retention [Unknown]
  - Neurogenic bladder [Unknown]
  - Constipation [Unknown]
